FAERS Safety Report 9798937 (Version 2)
Quarter: 2014Q1

REPORT INFORMATION
  Report Type: Spontaneous
  Country: US (occurrence: US)
  Receive Date: 20140106
  Receipt Date: 20140106
  Transmission Date: 20141002
  Serious: No
  Sender: FDA-Public Use
  Company Number: US-GILEAD-2010-0029859

PATIENT
  Sex: Male
  Weight: 72.57 kg

DRUGS (19)
  1. LETAIRIS [Suspect]
     Indication: PULMONARY ARTERIAL HYPERTENSION
     Route: 048
     Dates: start: 20100126
  2. FLOLAN [Concomitant]
  3. WARFARIN [Concomitant]
  4. FUROSEMIDE [Concomitant]
  5. FEXOFENADINE HCL [Concomitant]
  6. FLUTICASONE PROP [Concomitant]
  7. OXYGEN [Concomitant]
  8. POLYSPORIN [Concomitant]
  9. LOPERAMIDE [Concomitant]
  10. LUXIQ [Concomitant]
  11. BISACODYL [Concomitant]
  12. TYLENOL EX-STR [Concomitant]
  13. ALPRAZOLAM [Concomitant]
  14. PEPCID [Concomitant]
  15. POTASSIUM CHLORIDE [Concomitant]
  16. CALCIUM CITRATE [Concomitant]
  17. FOLIC ACID [Concomitant]
  18. MULTIVITAMIN [Concomitant]
  19. CALTRATE W/VIT D [Concomitant]

REACTIONS (2)
  - Lethargy [Unknown]
  - Fatigue [Unknown]
